FAERS Safety Report 4799971-3 (Version None)
Quarter: 2005Q4

REPORT INFORMATION
  Report Type: 
  Country: None (occurrence: None)
  Receive Date: 20051012
  Receipt Date: 20051012
  Transmission Date: 20060501
  Serious: Yes (Life-Threatening, Hospitalization)
  Sender: FDA-Public Use
  Company Number: None

PATIENT
  Age: 91 Year
  Sex: Male
  Weight: 91 kg

DRUGS (12)
  1. GLYBURIDE [Suspect]
     Indication: DIABETES MELLITUS NON-INSULIN-DEPENDENT
     Dosage: 2.5MG PO BID
     Route: 048
  2. LEVOFLOXACIN IN 5% DEXTROSE 5MG/ML, ORTHO-MCNEIL [Suspect]
     Indication: URINARY TRACT INFECTION
     Dosage: 500MG ONE TIME ONLY
     Dates: start: 20050928
  3. METHYLPHENIDATE HCL [Concomitant]
  4. FUROSEMIDE [Concomitant]
  5. FERROUS SULFATE TAB [Concomitant]
  6. POTASSIUM CHLORIDE [Concomitant]
  7. MIRTAZAPINE [Concomitant]
  8. ASPIRIN [Concomitant]
  9. LANSOPRAZOLE [Concomitant]
  10. ISOSORBIDE MONONITRATE [Concomitant]
  11. PRIMAXIN [Concomitant]
  12. TOBRAMYCIN OPTHALMIC [Concomitant]

REACTIONS (2)
  - BLOOD GLUCOSE INCREASED [None]
  - HYPOGLYCAEMIA [None]
